FAERS Safety Report 10065239 (Version 1)
Quarter: 2014Q1

REPORT INFORMATION
  Report Type: Spontaneous
  Country: US (occurrence: None)
  Receive Date: 20140328
  Receipt Date: 20140328
  Transmission Date: 20141002
  Serious: No
  Sender: FDA-Public Use
  Company Number: CABO-13003840

PATIENT
  Age: 64 Year
  Sex: Male

DRUGS (5)
  1. COMETRIQ (CABOZANTINIB) CAPSULE [Suspect]
     Indication: RENAL CANCER
     Route: 048
     Dates: start: 20131122, end: 20131231
  2. OXYCODONE HCL [Concomitant]
  3. OXYCONTIN [Concomitant]
  4. WARFARIN [Concomitant]
  5. ONDANSETRON [Concomitant]

REACTIONS (2)
  - International normalised ratio decreased [None]
  - Off label use [None]
